FAERS Safety Report 18707256 (Version 1)
Quarter: 2021Q1

REPORT INFORMATION
  Report Type: Spontaneous
  Country: US (occurrence: US)
  Receive Date: 20210106
  Receipt Date: 20210106
  Transmission Date: 20210419
  Serious: No
  Sender: FDA-Public Use
  Company Number: US-ASTRAZENECA-2020SF54330

PATIENT
  Age: 25319 Day
  Sex: Male
  Weight: 116.6 kg

DRUGS (6)
  1. ATORVASTATIN [Concomitant]
     Active Substance: ATORVASTATIN
     Indication: BLOOD CHOLESTEROL INCREASED
     Route: 048
  2. LOSARTAN. [Concomitant]
     Active Substance: LOSARTAN
     Indication: HYPERTENSION
     Route: 048
  3. TIMOLOL MALEATE. [Concomitant]
     Active Substance: TIMOLOL MALEATE
     Dosage: 1 DROP INTO BOTH EYES EVERY NIGHT0.5% UNKNOWN
  4. BYDUREON [Suspect]
     Active Substance: EXENATIDE
     Indication: DIABETES MELLITUS
     Dosage: 2 MG/0.65 ML
     Route: 065
  5. LEVOCETIRIZINE [Concomitant]
     Active Substance: LEVOCETIRIZINE
     Indication: MULTIPLE ALLERGIES
     Route: 048
  6. METFORMIN [Concomitant]
     Active Substance: METFORMIN HYDROCHLORIDE
     Indication: DIABETES MELLITUS
     Route: 048

REACTIONS (18)
  - Diarrhoea [Unknown]
  - Musculoskeletal stiffness [Unknown]
  - Dysphagia [Unknown]
  - Abdominal pain [Unknown]
  - Fatigue [Unknown]
  - Back pain [Unknown]
  - Weight decreased [Unknown]
  - Device use issue [Unknown]
  - Hypoaesthesia [Unknown]
  - Chest pain [Unknown]
  - Dyspepsia [Unknown]
  - Device malfunction [Unknown]
  - Neck pain [Unknown]
  - Glycosylated haemoglobin increased [Unknown]
  - Rectal haemorrhage [Unknown]
  - Constipation [Unknown]
  - Incorrect dose administered [Unknown]
  - Device leakage [Unknown]

NARRATIVE: CASE EVENT DATE: 20201116
